FAERS Safety Report 9474812 (Version 2)
Quarter: 2013Q4

REPORT INFORMATION
  Report Type: Spontaneous
  Country: CA (occurrence: CA)
  Receive Date: 20130823
  Receipt Date: 20131004
  Transmission Date: 20140711
  Serious: Yes (Other)
  Sender: FDA-Public Use
  Company Number: PHHY2013CA089311

PATIENT
  Age: 6 Year
  Sex: Male

DRUGS (5)
  1. OCTREOTIDE [Suspect]
     Dosage: UNK UKN, UNK
  2. TACROLIMUS [Suspect]
     Dosage: UNK UKN, UNK
  3. METHOTREXATE [Suspect]
     Dosage: UNK UKN, UNK
  4. BUSULFAN [Suspect]
     Dosage: 4 MG/KG, QD
  5. CYCLOPHOSPH+MESNA [Suspect]
     Dosage: 50 MG/KG, QD

REACTIONS (4)
  - Graft versus host disease [Unknown]
  - Migraine with aura [Unknown]
  - Aphasia [Unknown]
  - Drug ineffective [Unknown]
